FAERS Safety Report 6956879-2 (Version None)
Quarter: 2010Q3

REPORT INFORMATION
  Report Type: 
  Country: None (occurrence: None)
  Receive Date: 20100830
  Receipt Date: 20100820
  Transmission Date: 20110219
  Serious: Yes (Other)
  Sender: FDA-Public Use
  Company Number: US-AMGEN-QUU433113

PATIENT
  Sex: Male

DRUGS (6)
  1. NPLATE [Suspect]
     Indication: IDIOPATHIC THROMBOCYTOPENIC PURPURA
     Dates: start: 20090122, end: 20090423
  2. PREDNISONE [Concomitant]
     Dates: start: 20061003
  3. GLYBURIDE AND METFORMIN HYDROCHLORIDE [Concomitant]
  4. OXYCONTIN [Concomitant]
  5. PREVACID [Concomitant]
  6. PROMACTA [Concomitant]
     Route: 048
     Dates: start: 20090112

REACTIONS (2)
  - PLATELET COUNT DECREASED [None]
  - PLATELET COUNT INCREASED [None]
